FAERS Safety Report 4822004-7 (Version None)
Quarter: 2005Q4

REPORT INFORMATION
  Report Type: 
  Country: None (occurrence: None)
  Receive Date: 20051107
  Receipt Date: 20051031
  Transmission Date: 20060501
  Serious: Yes (Hospitalization)
  Sender: FDA-Public Use
  Company Number: US-JNJFOC-20051100419

PATIENT
  Age: 2 Month
  Sex: Male
  Weight: 5 kg

DRUGS (3)
  1. TYLENOL (CAPLET) [Suspect]
     Route: 048
  2. TYLENOL (CAPLET) [Suspect]
     Indication: DRUG USE FOR UNKNOWN INDICATION
     Dosage: }24 HR {=1WEEK
     Route: 048
  3. CODEINE [Suspect]
     Indication: DRUG USE FOR UNKNOWN INDICATION
     Dosage: 60 MG; }24 HR {=1WEEK
     Route: 048

REACTIONS (4)
  - DYSPNOEA [None]
  - IATROGENIC INJURY [None]
  - OVERDOSE [None]
  - TACHYCARDIA [None]
